FAERS Safety Report 17191475 (Version 8)
Quarter: 2020Q2

REPORT INFORMATION
  Report Type: Spontaneous
  Country: US (occurrence: US)
  Receive Date: 20191223
  Receipt Date: 20200625
  Transmission Date: 20200713
  Serious: Yes (Other)
  Sender: FDA-Public Use
  Company Number: US-PFIZER INC-2019549430

PATIENT
  Age: 74 Year
  Sex: Female

DRUGS (2)
  1. XELJANZ XR [Suspect]
     Active Substance: TOFACITINIB CITRATE
     Indication: RHEUMATOID ARTHRITIS
     Dosage: 11 MG, 1X/DAY
     Route: 048
     Dates: start: 20191218
  2. LASIX [Concomitant]
     Active Substance: FUROSEMIDE
     Dosage: UNK

REACTIONS (13)
  - Diabetes mellitus [Unknown]
  - Localised infection [Unknown]
  - Headache [Unknown]
  - Peripheral swelling [Recovering/Resolving]
  - Dyspnoea [Unknown]
  - Eye pain [Unknown]
  - Sinus disorder [Unknown]
  - Joint swelling [Recovering/Resolving]
  - Breast cancer [Unknown]
  - Pain [Recovering/Resolving]
  - Asthenia [Unknown]
  - Pain in extremity [Unknown]
  - Sinus congestion [Unknown]

NARRATIVE: CASE EVENT DATE: 202005
